FAERS Safety Report 5882917-4 (Version None)
Quarter: 2008Q3

REPORT INFORMATION
  Report Type: 
  Country: None (occurrence: None)
  Receive Date: 20080913
  Receipt Date: 20080819
  Transmission Date: 20090109
  Serious: No
  Sender: FDA-Public Use
  Company Number: US-ABBOTT-08P-163-0471919-00

PATIENT
  Sex: Female

DRUGS (3)
  1. HUMIRA [Suspect]
     Indication: CROHN'S DISEASE
     Dosage: STARTER DOSE
     Route: 058
     Dates: start: 20060201, end: 20060501
  2. HUMIRA [Suspect]
     Route: 058
     Dates: start: 20070301
  3. VITAMIN TAB [Concomitant]
     Indication: PREGNANCY
     Route: 048
     Dates: start: 20080201

REACTIONS (1)
  - CROHN'S DISEASE [None]
